FAERS Safety Report 18051831 (Version 2)
Quarter: 2020Q3

REPORT INFORMATION
  Report Type: Report from Study
  Country: GB (occurrence: GB)
  Receive Date: 20200721
  Receipt Date: 20200730
  Transmission Date: 20201103
  Serious: Yes (Other)
  Sender: FDA-Public Use
  Company Number: GB-JNJFOC-20200721901

PATIENT
  Age: 4 Decade
  Sex: Female

DRUGS (8)
  1. AMITRIPTYLINE [Concomitant]
     Active Substance: AMITRIPTYLINE
  2. PARACETAMOL [Concomitant]
     Active Substance: ACETAMINOPHEN
  3. LANSOPRAZOLE. [Concomitant]
     Active Substance: LANSOPRAZOLE
  4. STELARA [Suspect]
     Active Substance: USTEKINUMAB
     Indication: CROHN^S DISEASE
     Route: 058
     Dates: start: 20190425
  5. STELARA [Suspect]
     Active Substance: USTEKINUMAB
  6. CYCLIZINE                          /00014902/ [Concomitant]
  7. QUETIAPINE. [Concomitant]
     Active Substance: QUETIAPINE
  8. PROPANOLOL                         /00030001/ [Concomitant]
     Active Substance: PROPRANOLOL HYDROCHLORIDE

REACTIONS (4)
  - Inappropriate schedule of product administration [Unknown]
  - Migraine [Unknown]
  - Crohn^s disease [Not Recovered/Not Resolved]
  - Illness [Unknown]
